FAERS Safety Report 9782390 (Version 2)
Quarter: 2014Q1

REPORT INFORMATION
  Report Type: Spontaneous
  Country: GB (occurrence: GB)
  Receive Date: 20131226
  Receipt Date: 20140326
  Transmission Date: 20141002
  Serious: Yes (Disabling)
  Sender: FDA-Public Use
  Company Number: PHFR2013GB007299

PATIENT
  Age: 66 Year
  Sex: Female

DRUGS (8)
  1. ZOLEDRONATE [Suspect]
     Indication: OSTEOPOROSIS
     Dosage: 5 MG
     Route: 042
     Dates: start: 20131211
  2. SIMVASTATIN [Concomitant]
     Dosage: UNK
  3. OMEPRAZOLE [Concomitant]
     Dosage: UNK
  4. METFORMIN [Concomitant]
     Dosage: UNK
  5. CALFOVIT D3 [Concomitant]
     Dosage: UNK
  6. CHOLECALCIFEROL [Concomitant]
     Dosage: UNK
  7. COLECALCIFEROL [Concomitant]
     Dosage: UNK
  8. CALCIUM PHOSPHATE [Concomitant]
     Dosage: UNK

REACTIONS (7)
  - Aphagia [Recovered/Resolved]
  - Dyspnoea [Recovered/Resolved]
  - Pain [Recovered/Resolved]
  - Bone pain [Recovered/Resolved]
  - Nausea [Recovered/Resolved]
  - Vomiting [Recovered/Resolved]
  - Malaise [Recovered/Resolved]
